FAERS Safety Report 9587991 (Version 1)
Quarter: 2013Q4

REPORT INFORMATION
  Report Type: Spontaneous
  Country: US (occurrence: US)
  Receive Date: 20131003
  Receipt Date: 20131003
  Transmission Date: 20140711
  Serious: No
  Sender: FDA-Public Use
  Company Number: US-AMGEN-USASP2012067552

PATIENT
  Sex: Female
  Weight: 87.53 kg

DRUGS (24)
  1. ENBREL [Suspect]
     Indication: RHEUMATOID ARTHRITIS
     Dosage: 50 MG, QWK
     Route: 058
  2. METFORMIN [Concomitant]
     Dosage: 500 MG, UNK
  3. XANAX [Concomitant]
     Dosage: 0.5 MG, UNK
  4. WARFARIN [Concomitant]
     Dosage: 5 MG, UNK
  5. PLAQUENIL                          /00072602/ [Concomitant]
     Dosage: 200 MG, UNK
  6. BUSPAR [Concomitant]
     Dosage: 15 MG, UNK
  7. LASIX                              /00032601/ [Concomitant]
     Dosage: 40 MG, UNK
  8. METHOTREXATE [Concomitant]
     Dosage: 2.5 MG, UNK
  9. OXYCONTIN [Concomitant]
     Dosage: 60 MG, UNK
  10. METOPROLOL [Concomitant]
     Dosage: 25 MG, UNK
  11. PREDNISONE [Concomitant]
     Dosage: 10 MG, UNK
  12. FOLIC ACID [Concomitant]
     Dosage: 1 MG, UNK
  13. PRILOSEC                           /00661201/ [Concomitant]
     Dosage: 20 MG, UNK
  14. IMMUNE GLOBULIN [Concomitant]
     Dosage: UNK
  15. TYLENOL                            /00020001/ [Concomitant]
     Dosage: 325 MG, UNK
  16. IMODIUM A-D [Concomitant]
     Dosage: 2 MG, UNK
  17. MULTI-VIT [Concomitant]
     Dosage: UNK
  18. ALBUTEROL                          /00139501/ [Concomitant]
     Dosage: 1.25MG/3
  19. BUDESONIDE [Concomitant]
     Dosage: 0.5 MG/2
  20. ACIDOPHILUS [Concomitant]
     Dosage: UNK
  21. VITAMIN D                          /00107901/ [Concomitant]
     Dosage: 1000 UNIT
  22. AMBIEN [Concomitant]
     Dosage: 5 MG, UNK
  23. VALTREX [Concomitant]
     Dosage: 500 MG, UNK
  24. VESICARE [Concomitant]
     Dosage: 500 MG, UNK

REACTIONS (2)
  - Pain in extremity [Unknown]
  - Arthralgia [Unknown]
